FAERS Safety Report 7304118-5 (Version None)
Quarter: 2011Q1

REPORT INFORMATION
  Report Type: 
  Country: None (occurrence: None)
  Receive Date: 20110221
  Receipt Date: 20110217
  Transmission Date: 20110831
  Serious: Yes (Other)
  Sender: FDA-Public Use
  Company Number: BR-ABBOTT-11P-020-0706014-00

PATIENT
  Sex: Male

DRUGS (2)
  1. VALPROATE SODIUM [Suspect]
     Indication: EPILEPSY
  2. VALPROATE SODIUM [Suspect]
     Indication: CEREBRAL CYST
     Dosage: 1 DOSAGE FORM AT BEDTIME
     Route: 048
     Dates: start: 20070101

REACTIONS (6)
  - DIZZINESS [None]
  - CONVULSION [None]
  - URINARY INCONTINENCE [None]
  - BALANCE DISORDER [None]
  - LOSS OF CONSCIOUSNESS [None]
  - DYSSTASIA [None]
